FAERS Safety Report 7290770-X (Version None)
Quarter: 2011Q1

REPORT INFORMATION
  Report Type: 
  Country: None (occurrence: None)
  Receive Date: 20110214
  Receipt Date: 20110201
  Transmission Date: 20110831
  Serious: Yes (Death, Other)
  Sender: FDA-Public Use
  Company Number: AU-ROCHE-757154

PATIENT
  Sex: Male
  Weight: 69 kg

DRUGS (18)
  1. XELODA [Suspect]
     Dosage: CYCLE NO.:12. NUMBER OF DAYS TAKEN:14 DAYS
     Route: 065
     Dates: start: 20071214, end: 20071227
  2. AVASTIN [Suspect]
     Indication: COLORECTAL CANCER STAGE IV
     Dosage: DATE TREATMENT PLANNED TO START 20 APRIL 2007. ROUTE AND FORM PER PROTOCOL.
     Route: 065
     Dates: start: 20070420
  3. FRUSEMIDE [Concomitant]
  4. XELODA [Suspect]
     Dosage: CYCLE NO.:13. NUMBER OF DAYS TAKEN:14 DAYS
     Route: 065
     Dates: start: 20080104, end: 20080117
  5. KARVEA [Concomitant]
  6. AVASTIN [Suspect]
     Route: 065
     Dates: start: 20071214, end: 20071227
  7. CARVEDILOL [Concomitant]
  8. FOLINIC ACID [Concomitant]
     Dates: start: 20080501
  9. CLEXANE [Concomitant]
     Route: 048
     Dates: start: 20071223
  10. XELODA [Suspect]
     Indication: COLORECTAL CANCER STAGE IV
     Dosage: DOSING 12000 MG/M2/D. FORM AND ROUTE PER PROTOCOL.
     Route: 065
     Dates: start: 20070420
  11. AVASTIN [Suspect]
     Route: 065
     Dates: start: 20080101
  12. FLUOROURACIL [Concomitant]
     Dates: start: 20081001
  13. IRINOTECAN [Concomitant]
     Dates: start: 20080501
  14. CETUXIMAB [Concomitant]
  15. FOLINIC ACID [Concomitant]
     Dates: start: 20081001
  16. FLUOROURACIL [Concomitant]
     Dates: start: 20080501
  17. OXALIPLATIN [Concomitant]
     Dates: start: 20081001
  18. IRINOTECAN [Concomitant]

REACTIONS (2)
  - NEOPLASM MALIGNANT [None]
  - INTESTINAL OBSTRUCTION [None]
